FAERS Safety Report 23763708 (Version 5)
Quarter: 2024Q3

REPORT INFORMATION
  Report Type: Report from Study
  Country: JP (occurrence: JP)
  Receive Date: 20240419
  Receipt Date: 20240909
  Transmission Date: 20241017
  Serious: Yes (Hospitalization, Other)
  Sender: PFIZER
  Company Number: JP-PFIZER INC-202200763111

PATIENT
  Age: 2 Month
  Sex: Female
  Weight: 4.845 kg

DRUGS (13)
  1. SIROLIMUS [Suspect]
     Active Substance: SIROLIMUS
     Indication: Lymphatic malformation
     Dosage: 0.3 MG, DAILY
     Route: 048
     Dates: start: 20220411, end: 20220428
  2. SIROLIMUS [Suspect]
     Active Substance: SIROLIMUS
     Dosage: 0.2 MG, DAILY
     Route: 048
     Dates: start: 20220429, end: 20220826
  3. VITAMINS NOS [Concomitant]
     Active Substance: VITAMINS
     Indication: Prophylaxis
     Dosage: UNK
     Route: 050
     Dates: start: 20220622
  4. TOCOPHEROL ACETATE [TOCOPHERYL ACETATE] [Concomitant]
     Indication: Prophylaxis
     Dosage: UNK
     Route: 050
     Dates: start: 20220622
  5. CLAVAMOX [AMOXICILLIN TRIHYDRATE;CLAVULANATE POTASSIUM] [Concomitant]
     Indication: Infection prophylaxis
     Dosage: UNK
     Route: 050
     Dates: start: 20220408, end: 20220717
  6. FERRIC PYROPHOSPHATE [Concomitant]
     Active Substance: FERRIC PYROPHOSPHATE
     Indication: Prophylaxis
     Dosage: UNK
     Route: 050
     Dates: end: 20220824
  7. BLEOMYCIN HYDROCHLORIDE [Concomitant]
     Active Substance: BLEOMYCIN HYDROCHLORIDE
     Indication: Lymphatic malformation
     Dosage: UNK
     Route: 058
     Dates: start: 20220427, end: 20220427
  8. BLEOMYCIN HYDROCHLORIDE [Concomitant]
     Active Substance: BLEOMYCIN HYDROCHLORIDE
     Dosage: UNK
     Route: 058
     Dates: start: 20220516, end: 20220516
  9. BLEOMYCIN HYDROCHLORIDE [Concomitant]
     Active Substance: BLEOMYCIN HYDROCHLORIDE
     Dosage: UNK
     Route: 058
     Dates: start: 20220613, end: 20220613
  10. FUROSEMIDE [Concomitant]
     Active Substance: FUROSEMIDE
     Indication: Prophylaxis
     Dosage: UNK
     Route: 050
     Dates: start: 20220614, end: 20220713
  11. SPIRONOLACTONE [Concomitant]
     Active Substance: SPIRONOLACTONE
     Indication: Prophylaxis
     Dosage: UNK
     Route: 050
     Dates: start: 20220701, end: 20220713
  12. SODIUM FERROUS CITRATE [Concomitant]
     Active Substance: SODIUM FERROUS CITRATE
     Indication: Prophylaxis
     Dosage: UNK
     Route: 050
     Dates: start: 20220825, end: 20230805
  13. TSUMURA EPPIKAJUTSUTO EXTRACT GRANULES FOR ETHICAL USE [Concomitant]
     Indication: Lymphatic malformation
     Dosage: TSUMURA EPPIKAJUTSUTO EXTRACT GRANULES FOR ETHICAL USE
     Route: 050
     Dates: start: 20231018

REACTIONS (13)
  - Pneumonia aspiration [Recovered/Resolved]
  - Pneumonia staphylococcal [Recovered/Resolved]
  - Respiratory syncytial virus infection [Recovered/Resolved]
  - Infection [Recovered/Resolved]
  - Pneumonia aspiration [Recovered/Resolved]
  - Interstitial lung disease [Recovering/Resolving]
  - Interstitial lung disease [Recovering/Resolving]
  - Adenovirus infection [Recovered/Resolved]
  - Infantile vomiting [Recovered/Resolved]
  - Nausea [Recovered/Resolved]
  - Off label use [Unknown]
  - Intentional product use issue [Unknown]
  - Wrong technique in product usage process [Unknown]

NARRATIVE: CASE EVENT DATE: 20220411
